FAERS Safety Report 10381295 (Version 1)
Quarter: 2014Q3

REPORT INFORMATION
  Report Type: Spontaneous
  Country: JP (occurrence: JP)
  Receive Date: 20140813
  Receipt Date: 20140813
  Transmission Date: 20150326
  Serious: Yes (Other)
  Sender: FDA-Public Use
  Company Number: JP-WATSON-2014-17251

PATIENT
  Age: 77 Year
  Sex: Female

DRUGS (7)
  1. DONEPEZIL (UNKNOWN) [Interacting]
     Active Substance: DONEPEZIL
     Dosage: 3 MG, DAILY
     Route: 048
  2. NIFEDIPINE (UNKNOWN) [Suspect]
     Active Substance: NIFEDIPINE
     Indication: HYPERTENSION
     Dosage: 40 MG, UNKNOWN
     Route: 048
  3. DONEPEZIL (UNKNOWN) [Interacting]
     Active Substance: DONEPEZIL
     Dosage: 5 MG, DAILY
     Route: 048
  4. TELMISARTAN (UNKNOWN) [Suspect]
     Active Substance: TELMISARTAN
     Indication: HYPERTENSION
     Dosage: 40 MG, UNKNOWN
     Route: 048
  5. MEMANTINE (UNKNOWN) [Interacting]
     Active Substance: MEMANTINE
     Indication: DEMENTIA ALZHEIMER^S TYPE
     Dosage: 5 MG, DAILY
     Route: 065
  6. PRAVASTATIN SODIUM. [Concomitant]
     Active Substance: PRAVASTATIN SODIUM
     Indication: DYSLIPIDAEMIA
     Dosage: 5 MG, UNKNOWN
     Route: 048
  7. DONEPEZIL (UNKNOWN) [Suspect]
     Active Substance: DONEPEZIL
     Indication: DEMENTIA ALZHEIMER^S TYPE
     Dosage: 10 MG, DAILY
     Route: 048

REACTIONS (3)
  - Drug interaction [Recovered/Resolved]
  - Electrocardiogram PR prolongation [Recovered/Resolved]
  - Bradycardia [Unknown]
